FAERS Safety Report 5507431-7 (Version None)
Quarter: 2007Q4

REPORT INFORMATION
  Report Type: 
  Country: None (occurrence: None)
  Receive Date: 20071106
  Receipt Date: 20071102
  Transmission Date: 20080405
  Serious: Yes (Other)
  Sender: FDA-Public Use
  Company Number: DE-BRISTOL-MYERS SQUIBB COMPANY-13967070

PATIENT
  Age: 45 Year
  Sex: Female
  Weight: 70 kg

DRUGS (2)
  1. ORENCIA [Suspect]
     Indication: RHEUMATOID ARTHRITIS
     Dosage: DOSE 750 MG ON 01-OCT-2007 AND 31-OCT-2007.
     Dates: start: 20071001
  2. METHOTREXATE [Suspect]
     Indication: RHEUMATOID ARTHRITIS
     Dosage: MOST RECENT ADMNISTRATION ON 31-OCT-2007.
     Dates: start: 20030101

REACTIONS (3)
  - APHTHOUS STOMATITIS [None]
  - LEUKOPENIA [None]
  - NEUTROPENIA [None]
